FAERS Safety Report 23129679 (Version 1)
Quarter: 2023Q4

REPORT INFORMATION
  Report Type: Spontaneous
  Country: US (occurrence: US)
  Receive Date: 20231031
  Receipt Date: 20231031
  Transmission Date: 20240110
  Serious: Yes (Other)
  Sender: FDA-Public Use
  Company Number: US-GLAXOSMITHKLINE-US2023GSK149081

PATIENT

DRUGS (31)
  1. VALTREX [Suspect]
     Active Substance: VALACYCLOVIR HYDROCHLORIDE
     Indication: Varicella zoster virus infection
     Dosage: 2000 MG, TID
  2. VALTREX [Suspect]
     Active Substance: VALACYCLOVIR HYDROCHLORIDE
     Indication: Eye infection toxoplasmal
     Dosage: 2000 MG, BID
  3. SULFAMETHOXAZOLE\TRIMETHOPRIM [Concomitant]
     Active Substance: SULFAMETHOXAZOLE\TRIMETHOPRIM
     Indication: Varicella zoster virus infection
     Dosage: 160 MG, BID
     Route: 048
  4. SULFAMETHOXAZOLE\TRIMETHOPRIM [Concomitant]
     Active Substance: SULFAMETHOXAZOLE\TRIMETHOPRIM
     Indication: Eye infection toxoplasmal
  5. PEMBROLIZUMAB [Concomitant]
     Active Substance: PEMBROLIZUMAB
     Indication: Lung carcinoma cell type unspecified stage IV
     Dosage: 200 MG
  6. PEMBROLIZUMAB [Concomitant]
     Active Substance: PEMBROLIZUMAB
     Dosage: 200 MG
     Route: 042
  7. PACLITAXEL [Concomitant]
     Active Substance: PACLITAXEL
     Indication: Lung carcinoma cell type unspecified stage IV
     Dosage: 100 MG/M2
     Route: 042
  8. CARBOPLATIN [Concomitant]
     Active Substance: CARBOPLATIN
     Indication: Lung carcinoma cell type unspecified stage IV
     Dosage: UNK
     Route: 042
  9. DOCETAXEL [Concomitant]
     Active Substance: DOCETAXEL
     Indication: Lung carcinoma cell type unspecified stage IV
     Dosage: 75 MG/M2
  10. RAMUCIRUMAB [Concomitant]
     Active Substance: RAMUCIRUMAB
     Indication: Lung carcinoma cell type unspecified stage IV
     Dosage: 10 MG/KG
     Route: 042
  11. PEGFILGRASTIM [Concomitant]
     Active Substance: PEGFILGRASTIM
     Indication: Lung carcinoma cell type unspecified stage IV
     Dosage: 6 MG
     Route: 058
  12. ALBUTEROL [Concomitant]
     Active Substance: ALBUTEROL
     Indication: Product used for unknown indication
     Dosage: UNK
     Route: 055
  13. UMECLIDINIUM [Concomitant]
     Active Substance: UMECLIDINIUM
     Indication: Product used for unknown indication
     Dosage: UNK
     Route: 055
  14. BUPROPION [Concomitant]
     Active Substance: BUPROPION
     Indication: Product used for unknown indication
     Dosage: UNK
  15. DEXAMETHASONE [Concomitant]
     Active Substance: DEXAMETHASONE
     Indication: Product used for unknown indication
     Dosage: UNK
  16. LEVOTHYROXINE [Concomitant]
     Active Substance: LEVOTHYROXINE
     Indication: Product used for unknown indication
     Dosage: UNK
  17. LISINOPRIL [Concomitant]
     Active Substance: LISINOPRIL
     Indication: Product used for unknown indication
     Dosage: UNK
  18. NYSTATIN [Concomitant]
     Active Substance: NYSTATIN
     Indication: Product used for unknown indication
     Dosage: UNK
  19. OLANZAPINE [Concomitant]
     Active Substance: OLANZAPINE
     Indication: Product used for unknown indication
     Dosage: UNK
  20. PENICILLIN V POTASSIUM [Concomitant]
     Active Substance: PENICILLIN V POTASSIUM
     Indication: Product used for unknown indication
     Dosage: UNK
  21. PRAVASTATIN [Concomitant]
     Active Substance: PRAVASTATIN
     Indication: Product used for unknown indication
     Dosage: UNK
  22. FOSCARNET [Concomitant]
     Active Substance: FOSCARNET
     Indication: Herpes zoster
     Dosage: 1.2 MG, INTRAVITREAL
  23. FOSCARNET [Concomitant]
     Active Substance: FOSCARNET
     Indication: Herpes simplex
  24. GANCICLOVIR [Concomitant]
     Active Substance: GANCICLOVIR
     Indication: Herpes zoster
     Dosage: 2 MG, INTRAVITREAL
  25. GANCICLOVIR [Concomitant]
     Active Substance: GANCICLOVIR
     Indication: Herpes simplex
  26. TAGRISSO [Concomitant]
     Active Substance: OSIMERTINIB
     Indication: Squamous cell carcinoma
     Dosage: 80 MG, QD
  27. NIVOLUMAB [Concomitant]
     Active Substance: NIVOLUMAB
     Indication: Squamous cell carcinoma
     Dosage: 360 MG
     Route: 042
  28. NIVOLUMAB [Concomitant]
     Active Substance: NIVOLUMAB
     Dosage: 360 UNK
     Route: 042
  29. IPILIMUMAB [Concomitant]
     Active Substance: IPILIMUMAB
     Indication: Squamous cell carcinoma
     Dosage: 1 MG/KG
     Route: 042
  30. IPILIMUMAB [Concomitant]
     Active Substance: IPILIMUMAB
     Dosage: 1 UNK
     Route: 042
  31. ACYCLOVIR [Concomitant]
     Active Substance: ACYCLOVIR
     Indication: Retinitis viral
     Dosage: UNK
     Route: 048

REACTIONS (1)
  - Neutropenia [Unknown]
